FAERS Safety Report 20124777 (Version 1)
Quarter: 2021Q4

REPORT INFORMATION
  Report Type: Spontaneous
  Country: US (occurrence: US)
  Receive Date: 20211129
  Receipt Date: 20211129
  Transmission Date: 20220304
  Serious: No
  Sender: FDA-Public Use
  Company Number: US-AUROBINDO-AUR-APL-2020-057493

PATIENT
  Age: 50 Year
  Sex: Male
  Weight: 113.39 kg

DRUGS (1)
  1. GABAPENTIN [Suspect]
     Active Substance: GABAPENTIN
     Indication: Headache
     Dosage: 1 DOSAGE FORM (1 PILL)
     Route: 065

REACTIONS (3)
  - Insomnia [Unknown]
  - Tremor [Unknown]
  - Prescription drug used without a prescription [Unknown]
